FAERS Safety Report 19247235 (Version 3)
Quarter: 2021Q2

REPORT INFORMATION
  Report Type: Report from Study
  Country: None (occurrence: US)
  Receive Date: 20210512
  Receipt Date: 20210608
  Transmission Date: 20210717
  Serious: No
  Sender: FDA-Public Use
  Company Number: US-ABBVIE-21K-163-3886626-00

PATIENT
  Age: 75 Year
  Sex: Female

DRUGS (7)
  1. URSODIOL. [Concomitant]
     Active Substance: URSODIOL
     Indication: INTESTINAL OBSTRUCTION
  2. PREDNISONE. [Concomitant]
     Active Substance: PREDNISONE
     Indication: ARTHRITIS
  3. PANTOPRAZOLE [Concomitant]
     Active Substance: PANTOPRAZOLE
     Indication: ANTACID THERAPY
  4. LEVOTHYROXINE. [Concomitant]
     Active Substance: LEVOTHYROXINE
     Indication: THYROIDECTOMY
  5. LYRICA [Concomitant]
     Active Substance: PREGABALIN
     Indication: NEURALGIA
  6. HUMIRA [Suspect]
     Active Substance: ADALIMUMAB
     Indication: RHEUMATOID ARTHRITIS
     Route: 058
     Dates: start: 20210412
  7. URSODIOL. [Concomitant]
     Active Substance: URSODIOL
     Indication: HEPATIC CIRRHOSIS

REACTIONS (5)
  - Muscle tightness [Not Recovered/Not Resolved]
  - Anaemia [Recovering/Resolving]
  - Red blood cell count decreased [Recovering/Resolving]
  - Spondylitis [Not Recovered/Not Resolved]
  - Rheumatoid arthritis [Unknown]

NARRATIVE: CASE EVENT DATE: 202104
